FAERS Safety Report 5420993-3 (Version None)
Quarter: 2007Q3

REPORT INFORMATION
  Report Type: 
  Country: None (occurrence: None)
  Receive Date: 20070821
  Receipt Date: 20060703
  Transmission Date: 20080115
  Serious: Yes (Hospitalization)
  Sender: FDA-Public Use
  Company Number: US-ASTRAZENECA-2006AC01242

PATIENT
  Age: 48 Year
  Sex: Female

DRUGS (1)
  1. CEFOTETAN [Suspect]
     Dosage: 2G PREOPERATIVELY, 8G POSTOPERATIVELY

REACTIONS (1)
  - HAEMOLYTIC ANAEMIA [None]
